FAERS Safety Report 8250546-3 (Version None)
Quarter: 2012Q2

REPORT INFORMATION
  Report Type: 
  Country: None (occurrence: None)
  Receive Date: 20120402
  Receipt Date: 20120327
  Transmission Date: 20120825
  Serious: Yes (Life-Threatening, Hospitalization)
  Sender: FDA-Public Use
  Company Number: NL-PFIZER INC-2012079005

PATIENT
  Age: 67 Year
  Sex: Male

DRUGS (8)
  1. BISOPROLOL FUMARATE [Concomitant]
     Dosage: 2.5 MG, UNK
  2. PANTOPRAZOLE [Concomitant]
     Dosage: 40 MG, UNK
  3. LEVODOPA BENSERAZIDE HYDROCHLO [Concomitant]
     Dosage: 1 DF, 3X/DAY
  4. ROPINIROLE [Concomitant]
     Dosage: 4 MG, 1X/DAY
  5. AMIODARONE [Concomitant]
     Dosage: 200 MG, UNK
  6. DIFLUCAN [Concomitant]
     Dosage: 50 MG, 1X/DAY
  7. METFORMIN [Concomitant]
     Dosage: 500 MG, 2X/DAY
  8. SUTENT [Suspect]
     Indication: RENAL CELL CARCINOMA
     Dosage: 50 MG, UNK
     Dates: start: 20120203, end: 20120309

REACTIONS (2)
  - LIVER FUNCTION TEST ABNORMAL [None]
  - IDIOPATHIC THROMBOCYTOPENIC PURPURA [None]
